FAERS Safety Report 15837229 (Version 2)
Quarter: 2019Q1

REPORT INFORMATION
  Report Type: Spontaneous
  Country: EE (occurrence: EE)
  Receive Date: 20190117
  Receipt Date: 20190214
  Transmission Date: 20190417
  Serious: Yes (Death)
  Sender: FDA-Public Use
  Company Number: EE-ABBVIE-19K-221-2629321-00

PATIENT
  Age: 69 Year
  Sex: Male
  Weight: 70 kg

DRUGS (2)
  1. VENCLYXTO [Suspect]
     Active Substance: VENETOCLAX
     Indication: CHRONIC LYMPHOCYTIC LEUKAEMIA
     Dosage: NORMAL MAINTENANCE DOSAGE
     Route: 048
     Dates: start: 20180525, end: 201901
  2. OMEPRAZOLE. [Concomitant]
     Active Substance: OMEPRAZOLE
     Indication: PRODUCT USED FOR UNKNOWN INDICATION
     Route: 048
     Dates: start: 20181127

REACTIONS (4)
  - Leukocytosis [Fatal]
  - Richter^s syndrome [Fatal]
  - Anaemia [Fatal]
  - Disease progression [Fatal]

NARRATIVE: CASE EVENT DATE: 201901
